FAERS Safety Report 4689803-6 (Version None)
Quarter: 2005Q2

REPORT INFORMATION
  Report Type: 
  Country: None (occurrence: None)
  Receive Date: 20050613
  Receipt Date: 20050613
  Transmission Date: 20051028
  Serious: No
  Sender: FDA-Public Use
  Company Number: None

PATIENT
  Age: 67 Year
  Sex: Female
  Weight: 59.8748 kg

DRUGS (2)
  1. SPIVIRA    18MCG    ? [Suspect]
     Indication: CHRONIC OBSTRUCTIVE PULMONARY DISEASE
     Dosage: SPIVIRA    DAILY   RESPIRATOR
     Route: 055
     Dates: start: 20050401, end: 20050411
  2. FORADIL [Suspect]
     Indication: CHRONIC OBSTRUCTIVE PULMONARY DISEASE
     Dosage: FORADIL   TWICE A DAY    RESPIRATOR
     Route: 055
     Dates: start: 20050514, end: 20050527

REACTIONS (4)
  - FATIGUE [None]
  - MUSCLE SPASMS [None]
  - MYALGIA [None]
  - PAIN [None]
